FAERS Safety Report 25384869 (Version 1)
Quarter: 2025Q2

REPORT INFORMATION
  Report Type: Spontaneous
  Country: PL (occurrence: PL)
  Receive Date: 20250602
  Receipt Date: 20250602
  Transmission Date: 20250717
  Serious: Yes (Other)
  Sender: RANBAXY
  Company Number: PL-SUN PHARMACEUTICAL INDUSTRIES LTD-2025RR-510449

PATIENT
  Age: 39 Year
  Sex: Female

DRUGS (2)
  1. DASATINIB [Suspect]
     Active Substance: DASATINIB
     Indication: Myeloid leukaemia
     Dosage: 100 MILLIGRAM, DAILY
     Route: 065
  2. IMATINIB [Suspect]
     Active Substance: IMATINIB
     Indication: Myeloid leukaemia
     Dosage: 400 MILLIGRAM, DAILY
     Route: 065

REACTIONS (5)
  - Therapeutic product effect incomplete [Unknown]
  - Drug ineffective [Unknown]
  - Anaemia [Unknown]
  - Thrombocytopenia [Unknown]
  - Drug intolerance [Unknown]

NARRATIVE: CASE EVENT DATE: 20230301
